FAERS Safety Report 17849510 (Version 6)
Quarter: 2022Q4

REPORT INFORMATION
  Report Type: Report from Study
  Country: CO (occurrence: CO)
  Receive Date: 20200602
  Receipt Date: 20221018
  Transmission Date: 20230113
  Serious: Yes (Hospitalization, Other)
  Sender: FDA-Public Use
  Company Number: NVSC2020CO150715

PATIENT
  Age: 52 Year
  Sex: Female
  Weight: 68 kg

DRUGS (3)
  1. GILENYA [Suspect]
     Active Substance: FINGOLIMOD HYDROCHLORIDE
     Indication: Multiple sclerosis
     Dosage: 0.5 MG, QD
     Route: 048
     Dates: start: 20140206
  2. GILENYA [Suspect]
     Active Substance: FINGOLIMOD HYDROCHLORIDE
     Dosage: 0.5 MG, QD (THEY SUSPENDED IT FROM MIDDLE OF MAR TO THE BEGINNING OF MAY)
     Route: 048
  3. GILENYA [Suspect]
     Active Substance: FINGOLIMOD HYDROCHLORIDE
     Dosage: 0.5 MG, QD
     Route: 048

REACTIONS (18)
  - Pulmonary mass [Unknown]
  - Postoperative wound complication [Unknown]
  - Constipation [Unknown]
  - Seroma [Unknown]
  - Accident [Unknown]
  - Malaise [Recovered/Resolved]
  - Peritonitis [Unknown]
  - Diarrhoea [Unknown]
  - Nausea [Unknown]
  - Appendicitis [Unknown]
  - Abdominal pain [Recovering/Resolving]
  - Pneumonia [Recovered/Resolved]
  - Asthenia [Recovered/Resolved]
  - Pyrexia [Recovered/Resolved]
  - Cough [Recovered/Resolved]
  - SARS-CoV-2 test positive [Recovered/Resolved]
  - Influenza [Unknown]
  - Respiratory disorder [Recovering/Resolving]

NARRATIVE: CASE EVENT DATE: 20200414
